FAERS Safety Report 20586118 (Version 4)
Quarter: 2022Q2

REPORT INFORMATION
  Report Type: Spontaneous
  Country: US (occurrence: US)
  Receive Date: 20220313
  Receipt Date: 20220513
  Transmission Date: 20220720
  Serious: Yes (Hospitalization, Other)
  Sender: FDA-Public Use
  Company Number: US-BIOGEN-2022BI01103684

PATIENT
  Age: 54 Year
  Sex: Female

DRUGS (2)
  1. TYSABRI [Suspect]
     Active Substance: NATALIZUMAB
     Indication: Multiple sclerosis
     Route: 065
     Dates: start: 20150605, end: 20190925
  2. ARIMIDEX [Concomitant]
     Active Substance: ANASTROZOLE
     Indication: Product used for unknown indication
     Route: 065

REACTIONS (10)
  - Ovarian cancer stage III [Not Recovered/Not Resolved]
  - Multiple sclerosis relapse [Unknown]
  - Neoplasm malignant [Unknown]
  - Decreased immune responsiveness [Unknown]
  - Blood immunoglobulin G decreased [Unknown]
  - Gastric disorder [Unknown]
  - Hemihypoaesthesia [Not Recovered/Not Resolved]
  - Alopecia [Unknown]
  - Nausea [Unknown]
  - Flushing [Unknown]

NARRATIVE: CASE EVENT DATE: 20200801
